FAERS Safety Report 7245084-0 (Version None)
Quarter: 2011Q1

REPORT INFORMATION
  Report Type: 
  Country: None (occurrence: None)
  Receive Date: 20110126
  Receipt Date: 20110119
  Transmission Date: 20110831
  Serious: Yes (Hospitalization, Other)
  Sender: FDA-Public Use
  Company Number: US-PFIZER INC-2011013685

PATIENT
  Sex: Female
  Weight: 59 kg

DRUGS (6)
  1. CLONAZEPAM [Concomitant]
     Dosage: UNK
  2. LYRICA [Suspect]
     Indication: TOURETTE'S DISORDER
     Dosage: UNK
     Route: 048
  3. DEPO-PROVERA [Concomitant]
     Indication: CONTRACEPTION
     Dosage: UNK
  4. CLONIDINE [Concomitant]
     Indication: DEPRESSION
     Dosage: 1 MG, 3X/DAY
  5. PROZAC [Concomitant]
     Dosage: UNK
  6. CALCIUM [Concomitant]
     Dosage: UNK

REACTIONS (7)
  - HYPOTENSION [None]
  - VISION BLURRED [None]
  - DIZZINESS [None]
  - ANXIETY [None]
  - CONVULSION [None]
  - AMNESIA [None]
  - LOSS OF CONSCIOUSNESS [None]
